FAERS Safety Report 8801335 (Version 1)
Quarter: 2012Q4

REPORT INFORMATION
  Report Type: 
  Country: CH (occurrence: CH)
  Receive Date: 20120921
  Receipt Date: 20120921
  Transmission Date: 20130627
  Serious: Yes (Death)
  Sender: FDA-Public Use
  Company Number: CH-UCBSA-066500

PATIENT
  Age: 39 Year
  Sex: Male

DRUGS (6)
  1. LEVETIRACETAM [Suspect]
     Indication: STATUS EPILEPTICUS
  2. MIDAZOLAM [Suspect]
     Indication: STATUS EPILEPTICUS
  3. PROPOFOL [Suspect]
     Indication: STATUS EPILEPTICUS
  4. TOPIRAMATE [Suspect]
     Indication: STATUS EPILEPTICUS
     Dosage: DOSAGE: 400-799MG/DAY
  5. PHENYTOIN [Suspect]
     Indication: STATUS EPILEPTICUS
  6. PHENOBARBITAL [Suspect]
     Indication: STATUS EPILEPTICUS

REACTIONS (1)
  - Death [Fatal]
